FAERS Safety Report 10500957 (Version 2)
Quarter: 2014Q4

REPORT INFORMATION
  Report Type: Spontaneous
  Country: NZ (occurrence: NZ)
  Receive Date: 20141007
  Receipt Date: 20141007
  Transmission Date: 20150528
  Serious: Yes (Hospitalization, Other)
  Sender: FDA-Public Use
  Company Number: NZ-JNJFOC-20140923873

PATIENT

DRUGS (5)
  1. PARACETAMOL [Suspect]
     Active Substance: ACETAMINOPHEN
     Indication: SELF INJURIOUS BEHAVIOUR
     Route: 048
  2. NSAIDS [Suspect]
     Active Substance: UNSPECIFIED INGREDIENT
     Indication: SELF INJURIOUS BEHAVIOUR
     Route: 048
  3. OPIOIDS [Suspect]
     Active Substance: UNSPECIFIED INGREDIENT
     Indication: SELF INJURIOUS BEHAVIOUR
     Route: 048
  4. PARACETAMOL [Suspect]
     Active Substance: ACETAMINOPHEN
     Route: 048
  5. ETHANOL [Suspect]
     Active Substance: ALCOHOL
     Indication: SELF INJURIOUS BEHAVIOUR
     Route: 048

REACTIONS (1)
  - Overdose [Unknown]
